FAERS Safety Report 8342081-9 (Version None)
Quarter: 2012Q2

REPORT INFORMATION
  Report Type: 
  Country: None (occurrence: None)
  Receive Date: 20120507
  Receipt Date: 20120427
  Transmission Date: 20120825
  Serious: Yes (Hospitalization, Other)
  Sender: FDA-Public Use
  Company Number: PL-ROCHE-1022108

PATIENT
  Sex: Female
  Weight: 68 kg

DRUGS (10)
  1. VITAMIN B COMPLEX CAP [Concomitant]
     Dates: start: 20090615
  2. MIRCERA [Suspect]
     Indication: RENAL FAILURE CHRONIC
     Route: 058
     Dates: start: 20110812
  3. SIMVASTATIN [Concomitant]
     Dates: start: 20090815
  4. ACETYLSALICYLIC ACID SRT [Concomitant]
     Dates: start: 20090615
  5. FUROSEMIDE [Concomitant]
     Dates: start: 20060524
  6. MIRCERA [Suspect]
     Route: 058
     Dates: start: 20111010
  7. OMEPRAZOLE [Concomitant]
     Dates: start: 20070715
  8. MIRCERA [Suspect]
     Route: 058
     Dates: start: 20111107, end: 20111212
  9. CALCIUM CARBONATE [Concomitant]
     Dates: start: 20060524
  10. DEXAMETHASONE [Concomitant]
     Dates: start: 20111031

REACTIONS (4)
  - ANAEMIA [None]
  - HAEMOGLOBIN DECREASED [None]
  - RASH [None]
  - PRURITUS [None]
